FAERS Safety Report 21057080 (Version 5)
Quarter: 2022Q3

REPORT INFORMATION
  Report Type: Spontaneous
  Country: US (occurrence: US)
  Receive Date: 20220708
  Receipt Date: 20220826
  Transmission Date: 20221027
  Serious: No
  Sender: FDA-Public Use
  Company Number: US-AMGEN-USASP2022115572

PATIENT
  Age: 86 Year
  Sex: Female

DRUGS (2)
  1. ENBREL [Suspect]
     Active Substance: ETANERCEPT
     Indication: Off label use
     Dosage: 50 MILLIGRAM, QWK
     Route: 065
     Dates: start: 202206
  2. ENBREL [Suspect]
     Active Substance: ETANERCEPT
     Indication: Arthritis

REACTIONS (5)
  - Incorrect dose administered by device [Unknown]
  - Accidental exposure to product [Unknown]
  - Device use error [Unknown]
  - Off label use [Unknown]
  - Fear of injection [Unknown]

NARRATIVE: CASE EVENT DATE: 20220101
